FAERS Safety Report 12288441 (Version 2)
Quarter: 2016Q2

REPORT INFORMATION
  Report Type: Spontaneous
  Country: ES (occurrence: ES)
  Receive Date: 20160420
  Receipt Date: 20160504
  Transmission Date: 20160815
  Serious: Yes (Hospitalization, Other)
  Sender: FDA-Public Use
  Company Number: ES-AMGEN-ESPSP2016049969

PATIENT
  Age: 75 Year
  Sex: Female

DRUGS (3)
  1. ZAMENE [Concomitant]
     Active Substance: DEFLAZACORT
     Indication: PAIN
     Dosage: 1 DF, DAILY
  2. ARCOXIA [Concomitant]
     Active Substance: ETORICOXIB
     Indication: PAIN
     Dosage: 1 DF, DAILY
  3. ENBREL [Suspect]
     Active Substance: ETANERCEPT
     Indication: RHEUMATOID ARTHRITIS
     Dosage: 50 MG, WEEKLY
     Route: 065
     Dates: start: 2006, end: 201511

REACTIONS (1)
  - Pulmonary fibrosis [Not Recovered/Not Resolved]

NARRATIVE: CASE EVENT DATE: 2015
